FAERS Safety Report 5040788-2 (Version None)
Quarter: 2006Q2

REPORT INFORMATION
  Report Type: 
  Country: None (occurrence: None)
  Receive Date: 20060630
  Receipt Date: 20060630
  Transmission Date: 20061013
  Serious: No
  Sender: FDA-Public Use
  Company Number: None

PATIENT
  Sex: Male
  Weight: 66.6788 kg

DRUGS (5)
  1. RISPERIDONE [Suspect]
     Indication: MAJOR DEPRESSION
     Dosage: 0.5MG Q AM PO; 1MG QPM PO
     Route: 048
     Dates: start: 20060316, end: 20060406
  2. RISPERIDONE [Suspect]
     Indication: POST-TRAUMATIC STRESS DISORDER
     Dosage: 0.5MG Q AM PO; 1MG QPM PO
     Route: 048
     Dates: start: 20060316, end: 20060406
  3. APAP 325/BUTALBITAL 50/CAFF [Concomitant]
  4. HYDROCODONE 5/ACETAMINOPHEN 500MG [Concomitant]
  5. TRAZODONE HCL [Concomitant]

REACTIONS (4)
  - BURNING SENSATION [None]
  - GLOSSODYNIA [None]
  - ORAL INTAKE REDUCED [None]
  - PHARYNGOLARYNGEAL PAIN [None]
